FAERS Safety Report 17868454 (Version 1)
Quarter: 2020Q2

REPORT INFORMATION
  Report Type: Spontaneous
  Country: FR (occurrence: FR)
  Receive Date: 20200606
  Receipt Date: 20200606
  Transmission Date: 20200714
  Serious: Yes (Hospitalization)
  Sender: FDA-Public Use
  Company Number: FR-ACCORD-184443

PATIENT
  Age: 81 Year
  Sex: Male
  Weight: 100 kg

DRUGS (16)
  1. SYMBICORT [Concomitant]
     Active Substance: BUDESONIDE\FORMOTEROL FUMARATE DIHYDRATE
     Dosage: 400/12 MICROGRAM / DOSE,POWDER FOR INHALATION
  2. LERCANIDIPINE [Concomitant]
     Active Substance: LERCANIDIPINE
  3. IMOVANE [Concomitant]
     Active Substance: ZOPICLONE
     Dosage: 3,75 MG, FILM-COATED TABLET
  4. DAPTOMYCINE ACCORD [Suspect]
     Active Substance: DAPTOMYCIN
     Indication: INFECTION
     Route: 042
     Dates: start: 20200428, end: 20200429
  5. SERESTA [Concomitant]
     Active Substance: OXAZEPAM
     Dosage: 10 MG, TABLET
  6. STAGID [Concomitant]
     Active Substance: METFORMIN PAMOATE
     Dosage: 700 MG, SCORED TABLET
  7. ATORVASTATIN [Concomitant]
     Active Substance: ATORVASTATIN
  8. KARDEGIC [Concomitant]
     Active Substance: ASPIRIN DL-LYSINE
     Dosage: 75 MG, POWDER FOR ORAL SOLUTION IN SACHET-DOSE
  9. CEFEPIME [Suspect]
     Active Substance: CEFEPIME HYDROCHLORIDE
     Indication: INFECTION
     Dosage: 2 G, POWDER FOR INJECTABLE SOLUTION
     Route: 042
     Dates: start: 20200427, end: 20200429
  10. CANDESARTAN. [Concomitant]
     Active Substance: CANDESARTAN
  11. FUROSEMIDE. [Concomitant]
     Active Substance: FUROSEMIDE
  12. TRULICITY [Concomitant]
     Active Substance: DULAGLUTIDE
  13. PANTOPRAZOLE [Concomitant]
     Active Substance: PANTOPRAZOLE
  14. DESLORATADINE. [Concomitant]
     Active Substance: DESLORATADINE
  15. DOLIPRANE [Concomitant]
     Active Substance: ACETAMINOPHEN
  16. ELIQUIS [Concomitant]
     Active Substance: APIXABAN
     Dosage: 2,5 MG, FILM-COATED TABLET

REACTIONS (2)
  - Encephalopathy [Recovered/Resolved]
  - Rash [Recovered/Resolved]

NARRATIVE: CASE EVENT DATE: 20200429
